FAERS Safety Report 8603495-2 (Version None)
Quarter: 2012Q3

REPORT INFORMATION
  Report Type: 
  Country: None (occurrence: None)
  Receive Date: 20120817
  Receipt Date: 20120813
  Transmission Date: 20120928
  Serious: Yes (Death, Hospitalization, Other)
  Sender: FDA-Public Use
  Company Number: US-ASTRAZENECA-2010SE12069

PATIENT
  Age: 67 Year
  Sex: Male
  Weight: 72.6 kg

DRUGS (16)
  1. SEROQUEL [Suspect]
     Indication: INSOMNIA
     Route: 048
     Dates: start: 20090101
  2. LISINOPRIL [Concomitant]
     Indication: HYPERTENSION
     Route: 048
  3. ZOLOFT [Concomitant]
     Indication: DEPRESSION
  4. METFORMIN HYDROCHLORIDE [Concomitant]
     Indication: DIABETES MELLITUS
  5. PREDNIZONE [Concomitant]
     Indication: SLE ARTHRITIS
  6. CYTALIPRAM [Concomitant]
  7. METHADONE HYDROCHLORIDE [Concomitant]
     Indication: PAIN
  8. SEROQUEL [Suspect]
     Indication: SLEEP DISORDER
     Route: 048
     Dates: start: 20090101
  9. PLAVIX [Concomitant]
     Indication: CAROTID ARTERY OCCLUSION
  10. FLOMAX [Concomitant]
     Indication: PROSTATIC DISORDER
     Dosage: HS
  11. ULTRAM [Concomitant]
     Indication: BACK DISORDER
  12. LOPRESSOR [Concomitant]
     Indication: HYPERTENSION
  13. PRAVASTATIN [Concomitant]
     Indication: BLOOD CHOLESTEROL INCREASED
     Dosage: HS
  14. ASPIRIN [Concomitant]
  15. SEROQUEL [Suspect]
     Indication: BIPOLAR DISORDER
     Route: 048
     Dates: start: 20090101
  16. LEVOTHYROXINE SODIUM [Concomitant]
     Indication: THYROID DISORDER
     Dosage: OD

REACTIONS (14)
  - ARTERIAL OCCLUSIVE DISEASE [None]
  - DEATH [None]
  - GASTROENTERITIS VIRAL [None]
  - CEREBROVASCULAR ACCIDENT [None]
  - PYREXIA [None]
  - SEPSIS [None]
  - HIP FRACTURE [None]
  - DEHYDRATION [None]
  - CARDIAC FAILURE CONGESTIVE [None]
  - OFF LABEL USE [None]
  - URINARY TRACT INFECTION [None]
  - FALL [None]
  - FEMUR FRACTURE [None]
  - INFECTION [None]
